FAERS Safety Report 9404721 (Version 3)
Quarter: 2013Q3

REPORT INFORMATION
  Report Type: Report from Study
  Country: TR (occurrence: TR)
  Receive Date: 20130717
  Receipt Date: 20130829
  Transmission Date: 20140515
  Serious: Yes (Life-Threatening, Hospitalization)
  Sender: FDA-Public Use
  Company Number: PHHO2013TR009272

PATIENT
  Age: 48 Year
  Sex: Female
  Weight: 78 kg

DRUGS (4)
  1. AMN107 [Suspect]
     Indication: CHRONIC MYELOID LEUKAEMIA
     Dosage: 300 MG, BID
     Route: 048
     Dates: start: 20130219, end: 20130710
  2. AMN107 [Suspect]
     Dosage: 200 MG, BID
     Route: 048
     Dates: start: 20130807, end: 20130813
  3. AMN107 [Suspect]
     Dosage: 300 MG, BID
     Route: 048
     Dates: start: 20130814
  4. MOXIFLOXACIN [Suspect]
     Dosage: UNK
     Dates: start: 20130702, end: 20130710

REACTIONS (3)
  - Hyperbilirubinaemia [Recovered/Resolved]
  - Electrocardiogram QT prolonged [Recovered/Resolved]
  - Eyelid oedema [Recovered/Resolved]
